FAERS Safety Report 4882743-9 (Version None)
Quarter: 2006Q1

REPORT INFORMATION
  Report Type: 
  Country: None (occurrence: None)
  Receive Date: 20060117
  Receipt Date: 20050324
  Transmission Date: 20060701
  Serious: Yes (Other)
  Sender: FDA-Public Use
  Company Number: US-MERCK-0503USA04617

PATIENT
  Age: 36 Year
  Sex: Male
  Weight: 155 kg

DRUGS (1)
  1. VIOXX [Suspect]
     Indication: BACK PAIN
     Route: 048
     Dates: start: 20020404, end: 20041007

REACTIONS (11)
  - ANGINA PECTORIS [None]
  - BACK INJURY [None]
  - CARDIAC DISORDER [None]
  - CEREBROVASCULAR ACCIDENT [None]
  - CHEST PAIN [None]
  - ESSENTIAL HYPERTENSION [None]
  - HYPERTENSION [None]
  - MYOCARDIAL INFARCTION [None]
  - OTITIS MEDIA [None]
  - SINUSITIS [None]
  - TREATMENT NONCOMPLIANCE [None]
